FAERS Safety Report 9373938 (Version 1)
Quarter: 2013Q2

REPORT INFORMATION
  Report Type: Spontaneous
  Country: BR (occurrence: BR)
  Receive Date: 20130628
  Receipt Date: 20130628
  Transmission Date: 20140414
  Serious: Yes (Hospitalization)
  Sender: FDA-Public Use
  Company Number: BR-BRISTOL-MYERS SQUIBB COMPANY-19030170

PATIENT
  Age: 57 Year
  Sex: Female

DRUGS (2)
  1. KOMBIGLYZE XR [Suspect]
     Indication: TYPE 2 DIABETES MELLITUS
     Dosage: 1DF:1TAB:KOMBIGLYZE 5 MG + 1000 MG (SAXAGLIPTIN + METFORMIN)
     Route: 048
     Dates: start: 2013
  2. DIAMICRON [Concomitant]

REACTIONS (1)
  - Abdominal hernia [Recovered/Resolved]
